FAERS Safety Report 14296963 (Version 1)
Quarter: 2017Q4

REPORT INFORMATION
  Report Type: Spontaneous
  Country: US (occurrence: US)
  Receive Date: 20171218
  Receipt Date: 20171218
  Transmission Date: 20180321
  Serious: Yes (Other)
  Sender: FDA-Public Use
  Company Number: US-PFIZER INC-2017533338

PATIENT
  Age: 52 Year
  Sex: Male
  Weight: 81.63 kg

DRUGS (1)
  1. LYRICA [Suspect]
     Active Substance: PREGABALIN
     Indication: NEURALGIA
     Dosage: 100 MG, 4X/DAY
     Route: 048
     Dates: start: 2014, end: 2016

REACTIONS (4)
  - Product use issue [Unknown]
  - Apparent death [Unknown]
  - Road traffic accident [Unknown]
  - Nerve injury [Unknown]

NARRATIVE: CASE EVENT DATE: 20151224
